FAERS Safety Report 8966236 (Version 2)
Quarter: 2013Q1

REPORT INFORMATION
  Report Type: Spontaneous
  Country: US (occurrence: None)
  Receive Date: 20121204
  Receipt Date: 20121220
  Transmission Date: 20140127
  Serious: Yes (Hospitalization)
  Sender: FDA-Public Use
  Company Number: ACO_33149_2012

PATIENT
  Age: 62 Year
  Sex: Male
  Weight: 88 kg

DRUGS (5)
  1. AMPYRA [Suspect]
     Indication: MULTIPLE SCLEROSIS
     Dosage: 10 MG, BID, ORAL?09/--/2012 TO 11/20/2012
     Route: 048
     Dates: start: 201009, end: 201204
  2. FLOMAX [Concomitant]
  3. LEVOTHYROXINE [Concomitant]
  4. REBIF (INTERFERON BETA-1A) [Suspect]
  5. VITAMIN D [Concomitant]

REACTIONS (2)
  - Convulsion [None]
  - Tooth abscess [None]
